FAERS Safety Report 19084541 (Version 4)
Quarter: 2022Q2

REPORT INFORMATION
  Report Type: Spontaneous
  Country: US (occurrence: US)
  Receive Date: 20210401
  Receipt Date: 20220401
  Transmission Date: 20220720
  Serious: No
  Sender: FDA-Public Use
  Company Number: US-IBSA-2020IBSA00704

PATIENT
  Age: 63 Year
  Weight: 135.17 kg

DRUGS (15)
  1. DICLOFENAC EPOLAMINE [Suspect]
     Active Substance: DICLOFENAC EPOLAMINE
  2. SULFAMETHOXAZOLE\TRIMETHOPRIM [Suspect]
     Active Substance: SULFAMETHOXAZOLE\TRIMETHOPRIM
  3. SUCROSE [Suspect]
     Active Substance: SUCROSE
  4. DEXTROSE [Suspect]
     Active Substance: DEXTROSE
  5. NIACIN [Suspect]
     Active Substance: NIACIN
  6. CODEINE [Suspect]
     Active Substance: CODEINE
  7. THIMEROSAL [Suspect]
     Active Substance: THIMEROSAL
  8. NABUMETONE [Suspect]
     Active Substance: NABUMETONE
  9. TRAMADOL [Suspect]
     Active Substance: TRAMADOL
  10. COBALT [Suspect]
     Active Substance: COBALT
  11. NICKEL [Suspect]
     Active Substance: NICKEL
  12. PIOGLITAZONE [Suspect]
     Active Substance: PIOGLITAZONE
  13. HERBALS\PLANTAGO OVATA SEED COAT [Suspect]
     Active Substance: HERBALS\PLANTAGO OVATA SEED COAT
  14. COLESEVELAM [Suspect]
     Active Substance: COLESEVELAM
  15. PALLADIUM [Suspect]
     Active Substance: PALLADIUM

REACTIONS (4)
  - Chest discomfort [Unknown]
  - Drug hypersensitivity [Unknown]
  - Dyspnoea [Unknown]
  - Blood pressure increased [Unknown]
